FAERS Safety Report 12750064 (Version 4)
Quarter: 2016Q4

REPORT INFORMATION
  Report Type: Spontaneous
  Country: US (occurrence: US)
  Receive Date: 20160915
  Receipt Date: 20161006
  Transmission Date: 20170207
  Serious: Yes (Other)
  Sender: FDA-Public Use
  Company Number: US-ACTELION-A-NJ2016-141954

PATIENT
  Age: 68 Year
  Sex: Female
  Weight: 102.4 kg

DRUGS (3)
  1. UPTRAVI [Suspect]
     Active Substance: SELEXIPAG
     Dosage: 200 MCG, BID
     Route: 048
     Dates: start: 20160825
  2. UPTRAVI [Suspect]
     Active Substance: SELEXIPAG
     Dosage: 600 MCG, BID
     Route: 048
  3. UPTRAVI [Suspect]
     Active Substance: SELEXIPAG
     Indication: PULMONARY ARTERIAL HYPERTENSION
     Dosage: 400 MCG, BID
     Route: 048

REACTIONS (11)
  - Cardioversion [Unknown]
  - Dyspnoea [Unknown]
  - Diarrhoea [Unknown]
  - Muscle spasms [Unknown]
  - Atrial fibrillation [Unknown]
  - Myalgia [Unknown]
  - Headache [Unknown]
  - Pain in jaw [Unknown]
  - Heart rate increased [Unknown]
  - Flushing [Unknown]
  - Drug dose omission [Unknown]
